FAERS Safety Report 7860842-7 (Version None)
Quarter: 2011Q4

REPORT INFORMATION
  Report Type: 
  Country: None (occurrence: None)
  Receive Date: 20111026
  Receipt Date: 20111019
  Transmission Date: 20120403
  Serious: Yes (Disabling, Other)
  Sender: FDA-Public Use
  Company Number: ACO_25897_2011

PATIENT
  Age: 41 Year
  Sex: Female
  Weight: 63.5 kg

DRUGS (6)
  1. AMPYRA [Suspect]
     Indication: GAIT DISTURBANCE
     Dosage: 10MG, BID, ORAL
     Route: 048
     Dates: start: 20110701, end: 20110715
  2. COPAXONE [Concomitant]
  3. BACLOFEN [Concomitant]
  4. VESICARE [Concomitant]
  5. PROAIR HFA (SALBUTAMOL SULFATE) [Concomitant]
  6. GABAPENTIN [Concomitant]

REACTIONS (12)
  - TREMOR [None]
  - FEELING ABNORMAL [None]
  - DYSSTASIA [None]
  - CHEST DISCOMFORT [None]
  - HEADACHE [None]
  - ABASIA [None]
  - DYSPHAGIA [None]
  - DIZZINESS [None]
  - PYREXIA [None]
  - ODYNOPHAGIA [None]
  - VISUAL IMPAIRMENT [None]
  - HYPERSENSITIVITY [None]
